FAERS Safety Report 25786072 (Version 2)
Quarter: 2025Q3

REPORT INFORMATION
  Report Type: Spontaneous
  Country: EU (occurrence: EU)
  Receive Date: 20250910
  Receipt Date: 20250916
  Transmission Date: 20251021
  Serious: Yes (Other)
  Sender: MERCK SHARP & DOHME LLC
  Company Number: EU-009507513-2326619

PATIENT
  Age: 54 Year
  Sex: Male

DRUGS (10)
  1. PEMBROLIZUMAB [Suspect]
     Active Substance: PEMBROLIZUMAB
     Indication: Squamous cell carcinoma of head and neck
     Dates: start: 20231020, end: 20231020
  2. PEMBROLIZUMAB [Suspect]
     Active Substance: PEMBROLIZUMAB
     Indication: Squamous cell carcinoma of head and neck
     Dates: start: 20240109, end: 20240109
  3. PEMBROLIZUMAB [Suspect]
     Active Substance: PEMBROLIZUMAB
     Indication: Squamous cell carcinoma of head and neck
     Dates: start: 20240319, end: 20240319
  4. CISPLATIN [Suspect]
     Active Substance: CISPLATIN
     Indication: Squamous cell carcinoma of head and neck
     Dates: start: 20231020, end: 20231020
  5. CISPLATIN [Suspect]
     Active Substance: CISPLATIN
     Indication: Squamous cell carcinoma of head and neck
     Dates: start: 20240109, end: 20240109
  6. CISPLATIN [Suspect]
     Active Substance: CISPLATIN
     Indication: Squamous cell carcinoma of head and neck
     Dates: start: 20240319, end: 20240319
  7. FLUOROURACIL [Suspect]
     Active Substance: FLUOROURACIL
     Indication: Squamous cell carcinoma of head and neck
     Dates: start: 20231020, end: 20231020
  8. FLUOROURACIL [Suspect]
     Active Substance: FLUOROURACIL
     Indication: Squamous cell carcinoma of head and neck
     Dates: start: 20240109, end: 20240109
  9. FLUOROURACIL [Suspect]
     Active Substance: FLUOROURACIL
     Indication: Squamous cell carcinoma of head and neck
     Dates: start: 20240319, end: 20240319
  10. TTS-Fentanyl [Concomitant]
     Indication: Pain

REACTIONS (6)
  - Malignant neoplasm progression [Unknown]
  - Malaise [Unknown]
  - Cachexia [Unknown]
  - Performance status decreased [Unknown]
  - Pain [Unknown]
  - Hospice care [Unknown]

NARRATIVE: CASE EVENT DATE: 20240109
